FAERS Safety Report 13710561 (Version 4)
Quarter: 2017Q4

REPORT INFORMATION
  Report Type: Report from Study
  Country: US (occurrence: US)
  Receive Date: 20170703
  Receipt Date: 20171019
  Transmission Date: 20180320
  Serious: Yes (Other)
  Sender: FDA-Public Use
  Company Number: US-AMGEN-USASL2017098066

PATIENT
  Age: 71 Year
  Sex: Female
  Weight: 71.5 kg

DRUGS (2)
  1. PLAVIX [Concomitant]
     Active Substance: CLOPIDOGREL BISULFATE
  2. REPATHA [Suspect]
     Active Substance: EVOLOCUMAB
     Indication: HYPERCHOLESTEROLAEMIA
     Dosage: 140 MG, Q2WK
     Route: 058
     Dates: start: 20170307

REACTIONS (6)
  - Upper respiratory tract congestion [Recovered/Resolved]
  - Back pain [Recovering/Resolving]
  - Rhinorrhoea [Unknown]
  - Nasal pruritus [Recovered/Resolved]
  - Urinary tract infection [Unknown]
  - Injection site bruising [Unknown]

NARRATIVE: CASE EVENT DATE: 2017
